FAERS Safety Report 20082806 (Version 1)
Quarter: 2021Q4

REPORT INFORMATION
  Report Type: Spontaneous
  Country: US (occurrence: None)
  Receive Date: 20211117
  Receipt Date: 20211117
  Transmission Date: 20220303
  Serious: Yes (Other)
  Sender: FDA-Public Use
  Company Number: None

PATIENT
  Age: 43 Year
  Sex: Female
  Weight: 67.7 kg

DRUGS (5)
  1. CASIRIVIMAB\IMDEVIMAB [Suspect]
     Active Substance: CASIRIVIMAB\IMDEVIMAB
     Route: 042
     Dates: start: 20211116, end: 20211116
  2. ALBUTEROL [Concomitant]
     Active Substance: ALBUTEROL
  3. CICLESONIDE [Concomitant]
     Active Substance: CICLESONIDE
  4. PROPRANOLOL [Concomitant]
     Active Substance: PROPRANOLOL HYDROCHLORIDE
  5. SUMATRIPTAN [Concomitant]
     Active Substance: SUMATRIPTAN

REACTIONS (5)
  - Hypersensitivity [None]
  - Infusion site pain [None]
  - Infusion site rash [None]
  - Pruritus [None]
  - Pruritus [None]

NARRATIVE: CASE EVENT DATE: 20211116
